FAERS Safety Report 4836437-6 (Version None)
Quarter: 2005Q4

REPORT INFORMATION
  Report Type: 
  Country: None (occurrence: None)
  Receive Date: 20051123
  Receipt Date: 20051114
  Transmission Date: 20060501
  Serious: Yes (Other)
  Sender: FDA-Public Use
  Company Number: US-JNJFOC-20050900269

PATIENT
  Sex: Female
  Weight: 65.77 kg

DRUGS (1)
  1. DURAGESIC-100 [Suspect]
     Route: 062

REACTIONS (4)
  - DENTAL CARIES [None]
  - MUCOSAL DISCOLOURATION [None]
  - TONGUE DISCOLOURATION [None]
  - TOOTH DISCOLOURATION [None]
